FAERS Safety Report 10431249 (Version 1)
Quarter: 2014Q3

REPORT INFORMATION
  Report Type: Spontaneous
  Country: US (occurrence: US)
  Receive Date: 20140904
  Receipt Date: 20140904
  Transmission Date: 20150326
  Serious: Yes (Death, Other)
  Sender: FDA-Public Use
  Company Number: PHHY2014US109438

PATIENT
  Age: 41 Year
  Sex: Female

DRUGS (6)
  1. VERAPAMIL [Suspect]
     Active Substance: VERAPAMIL HYDROCHLORIDE
     Indication: OFF LABEL USE
  2. GLUCAGON. [Suspect]
     Active Substance: GLUCAGON
  3. FAT EMULSION NOS [Suspect]
     Active Substance: EGG PHOSPHOLIPIDS\SAFFLOWER OIL\SOYBEAN OIL
     Route: 042
  4. INSULIN [Suspect]
     Active Substance: INSULIN NOS
  5. VERAPAMIL [Suspect]
     Active Substance: VERAPAMIL HYDROCHLORIDE
     Indication: HEADACHE
     Dosage: 30 DF, IN A 5-HOUR PERIOD
  6. CALCIUM [Suspect]
     Active Substance: CALCIUM

REACTIONS (4)
  - Accidental overdose [Fatal]
  - General physical health deterioration [Unknown]
  - Drug ineffective [Unknown]
  - Headache [Unknown]
